FAERS Safety Report 18827396 (Version 1)
Quarter: 2021Q1

REPORT INFORMATION
  Report Type: Spontaneous
  Country: PR (occurrence: PR)
  Receive Date: 20210201
  Receipt Date: 20210201
  Transmission Date: 20210419
  Serious: No
  Sender: FDA-Public Use
  Company Number: PR-ABBVIE-20K-131-3549991-00

PATIENT
  Sex: Female

DRUGS (1)
  1. HUMIRA [Suspect]
     Active Substance: ADALIMUMAB
     Indication: RHEUMATOID ARTHRITIS
     Dosage: DURATION: GREATER THAN 2 YEARS
     Route: 058

REACTIONS (5)
  - Device issue [Recovered/Resolved]
  - Fear of injection [Not Recovered/Not Resolved]
  - Wrong technique in product usage process [Unknown]
  - Hypoacusis [Unknown]
  - Incorrect dose administered [Unknown]
